FAERS Safety Report 17987386 (Version 1)
Quarter: 2020Q3

REPORT INFORMATION
  Report Type: Spontaneous
  Country: US (occurrence: US)
  Receive Date: 20200707
  Receipt Date: 20200707
  Transmission Date: 20201103
  Serious: Yes (Other)
  Sender: FDA-Public Use
  Company Number: US-TEVA-2020-US-1796438

PATIENT
  Sex: Female

DRUGS (1)
  1. POTASSIUM CHLORIDE. [Suspect]
     Active Substance: POTASSIUM CHLORIDE
     Dosage: 20MEQ
     Route: 048

REACTIONS (5)
  - Product use complaint [Unknown]
  - Choking [Unknown]
  - Product size issue [Unknown]
  - Product solubility abnormal [Unknown]
  - Dyspnoea [Unknown]
